FAERS Safety Report 13614651 (Version 1)
Quarter: 2017Q2

REPORT INFORMATION
  Report Type: Spontaneous
  Country: US (occurrence: US)
  Receive Date: 20170605
  Receipt Date: 20170605
  Transmission Date: 20170830
  Serious: No
  Sender: FDA-Public Use
  Company Number: None

PATIENT
  Age: 65 Year
  Sex: Female
  Weight: 112.5 kg

DRUGS (4)
  1. ZOLOFT [Concomitant]
     Active Substance: SERTRALINE HYDROCHLORIDE
  2. NABUMETONE. [Suspect]
     Active Substance: NABUMETONE
     Indication: BACK PAIN
     Dosage: ?          QUANTITY:40 TABLET(S);?
     Route: 048
     Dates: start: 20170520, end: 20170522
  3. SYNTHROID [Concomitant]
     Active Substance: LEVOTHYROXINE SODIUM
  4. NABUMETONE. [Suspect]
     Active Substance: NABUMETONE
     Indication: PAIN IN EXTREMITY
     Dosage: ?          QUANTITY:40 TABLET(S);?
     Route: 048
     Dates: start: 20170520, end: 20170522

REACTIONS (1)
  - Insomnia [None]

NARRATIVE: CASE EVENT DATE: 20170520
